FAERS Safety Report 15853144 (Version 3)
Quarter: 2019Q3

REPORT INFORMATION
  Report Type: Spontaneous
  Country: US (occurrence: US)
  Receive Date: 20190122
  Receipt Date: 20190919
  Transmission Date: 20191004
  Serious: Yes (Other)
  Sender: FDA-Public Use
  Company Number: US-VERTEX PHARMACEUTICALS-2019-000439

PATIENT
  Age: 53 Year
  Sex: Female

DRUGS (2)
  1. SYMDEKO [Suspect]
     Active Substance: IVACAFTOR\TEZACAFTOR
     Indication: CYSTIC FIBROSIS
     Dosage: UNK
     Route: 048
     Dates: start: 20190107, end: 2019
  2. SYMDEKO [Suspect]
     Active Substance: IVACAFTOR\TEZACAFTOR
     Dosage: REDUCED (TAKING 1 PILL)
     Route: 048
     Dates: start: 2019

REACTIONS (9)
  - Arthralgia [Recovering/Resolving]
  - Headache [Recovered/Resolved]
  - Dehydration [Unknown]
  - Feeling abnormal [Unknown]
  - Hyperhidrosis [Recovered/Resolved]
  - Dry eye [Recovered/Resolved]
  - Psychomotor hyperactivity [Recovered/Resolved]
  - Abdominal pain [Unknown]
  - Seizure [Unknown]

NARRATIVE: CASE EVENT DATE: 201901
